FAERS Safety Report 19644512 (Version 1)
Quarter: 2021Q3

REPORT INFORMATION
  Report Type: Report from Study
  Country: None (occurrence: US)
  Receive Date: 20210801
  Receipt Date: 20210801
  Transmission Date: 20211014
  Serious: Yes (Hospitalization, Other)
  Sender: FDA-Public Use
  Company Number: US-ABBVIE-21K-163-4011396-00

PATIENT
  Age: 84 Year
  Sex: Male

DRUGS (1)
  1. VENCLEXTA [Suspect]
     Active Substance: VENETOCLAX
     Indication: ACUTE MYELOID LEUKAEMIA
     Dosage: DOSE 100 MILLIGRAMS 4 TABLET DAILY FOR 3 WEEKS ON, THEN ONE WEEK OFF
     Route: 048
     Dates: start: 20210706, end: 20210726

REACTIONS (7)
  - Blood count abnormal [Not Recovered/Not Resolved]
  - Asthenia [Not Recovered/Not Resolved]
  - Platelet count decreased [Not Recovered/Not Resolved]
  - Heart rate increased [Not Recovered/Not Resolved]
  - Hypotension [Not Recovered/Not Resolved]
  - Dehydration [Not Recovered/Not Resolved]
  - Renal impairment [Not Recovered/Not Resolved]

NARRATIVE: CASE EVENT DATE: 202107
